FAERS Safety Report 13008959 (Version 1)
Quarter: 2016Q4

REPORT INFORMATION
  Report Type: Spontaneous
  Country: US (occurrence: US)
  Receive Date: 20161208
  Receipt Date: 20161208
  Transmission Date: 20170207
  Serious: No
  Sender: FDA-Public Use
  Company Number: US-009507513-1611USA004029

PATIENT
  Age: 31 Year
  Sex: Female
  Weight: 102 kg

DRUGS (5)
  1. INSULIN [Concomitant]
     Active Substance: INSULIN NOS
     Dosage: UNK
  2. CELESTONE [Suspect]
     Active Substance: BETAMETHASONE
     Indication: MATERNAL THERAPY TO ENHANCE FOETAL LUNG MATURITY
     Dosage: UNK
     Route: 048
  3. PEPCID [Suspect]
     Active Substance: FAMOTIDINE
     Dosage: 20 MG, UNK
  4. MAGNESIUM (UNSPECIFIED) [Suspect]
     Active Substance: MAGNESIUM
     Indication: PROPHYLAXIS
     Dosage: UNK
  5. LABETALOL [Concomitant]
     Active Substance: LABETALOL\LABETALOL HYDROCHLORIDE
     Indication: ESSENTIAL HYPERTENSION
     Dosage: UNK

REACTIONS (1)
  - Exposure during pregnancy [Recovered/Resolved]
